FAERS Safety Report 7718159-7 (Version None)
Quarter: 2011Q3

REPORT INFORMATION
  Report Type: 
  Country: None (occurrence: None)
  Receive Date: 20110830
  Receipt Date: 20110823
  Transmission Date: 20111222
  Serious: Yes (Hospitalization)
  Sender: FDA-Public Use
  Company Number: JP-ROCHE-798451

PATIENT
  Age: 38 Year
  Sex: Male
  Weight: 91 kg

DRUGS (6)
  1. CELLCEPT [Suspect]
     Indication: GRAFT VERSUS HOST DISEASE
     Route: 048
     Dates: start: 20070501, end: 20070601
  2. CYCLOSPORINE [Concomitant]
     Dates: start: 20070401, end: 20080601
  3. METHYLPREDNISOLONE [Concomitant]
     Dates: start: 20070501, end: 20070601
  4. CELLCEPT [Suspect]
     Route: 048
     Dates: start: 20070601, end: 20080101
  5. METHOTREXATE [Concomitant]
     Dates: start: 20070401, end: 20070401
  6. PREDNISOLONE [Concomitant]
     Dates: start: 20070801, end: 20080101

REACTIONS (2)
  - NEPHROTIC SYNDROME [None]
  - GLOMERULONEPHRITIS MEMBRANOUS [None]
